FAERS Safety Report 16897829 (Version 1)
Quarter: 2019Q4

REPORT INFORMATION
  Report Type: Spontaneous
  Country: GB (occurrence: GB)
  Receive Date: 20191009
  Receipt Date: 20191009
  Transmission Date: 20200122
  Serious: Yes (Other)
  Sender: FDA-Public Use
  Company Number: GB-TEVA-2019-GB-1118274

PATIENT
  Age: 69 Year
  Sex: Female
  Weight: 63 kg

DRUGS (14)
  1. AMITRIPTYLINE HYDROCHLORIDE. [Concomitant]
     Active Substance: AMITRIPTYLINE HYDROCHLORIDE
     Dosage: 1-2 AT NIGHT
     Dates: start: 20180810
  2. FLUTICASONE. [Concomitant]
     Active Substance: FLUTICASONE
     Dosage: 4 DOSAGE FORMS PER DAY
     Route: 055
     Dates: start: 20161005
  3. PARACETAMOL [Concomitant]
     Active Substance: ACETAMINOPHEN
     Dosage: TAKE 1 OR 2 4 TIMES/DAY
     Dates: start: 20180816, end: 20190822
  4. ARCOXIA [Concomitant]
     Active Substance: ETORICOXIB
     Dosage: 1-2 DAILY WITH FOOD (STOP IBUPROFEN)
     Dates: start: 20180810
  5. CODEINE PHOSPHATE [Concomitant]
     Active Substance: CODEINE PHOSPHATE
     Indication: ANALGESIC THERAPY
     Dosage: 4 TIMES/DAY (1 DOSAGE FORMS)
     Dates: start: 20190529, end: 20190822
  6. HYDROXOCOBALAMIN [Concomitant]
     Active Substance: HYDROXOCOBALAMIN
     Dosage: TO BE ADMINISTERED BY HEALTHCARE PROFESSIONAL
     Dates: start: 20190628, end: 20190726
  7. SALBUTAMOL [Concomitant]
     Active Substance: ALBUTEROL
     Dosage: FOUR TIMES A DAY
     Dates: start: 20150929
  8. FLUTICASONE FUROATE [Concomitant]
     Active Substance: FLUTICASONE FUROATE
     Dosage: USE ONCE DAILY
     Dates: start: 20150929
  9. EVOREL [Concomitant]
     Dosage: 2 DOSAGE FORMS EVERY WEEK
     Dates: start: 20181120
  10. NITROFURANTOIN. [Suspect]
     Active Substance: NITROFURANTOIN
     Dosage: 200 MG PER DAY
     Dates: start: 20190910, end: 20190917
  11. TRIMETHOPRIM. [Concomitant]
     Active Substance: TRIMETHOPRIM
     Dosage: TAKE TWO TWICE DAILY
     Dates: start: 20190913
  12. COCODAMOL [Concomitant]
     Active Substance: ACETAMINOPHEN\CODEINE PHOSPHATE
     Indication: ANALGESIC THERAPY
     Dosage: 1-2 TO BE TAKEN FOUR TIMES DAILY FOR PAIN
     Dates: start: 20190822
  13. DESLORATADINE. [Concomitant]
     Active Substance: DESLORATADINE
     Dosage: 1 DOSAGE FORMS PER DAY
     Dates: start: 20180810
  14. LEVOTHYROXINE. [Concomitant]
     Active Substance: LEVOTHYROXINE
     Dosage: 1 DOSAGE FORMS PER DAY
     Dates: start: 20181120

REACTIONS (3)
  - Headache [Unknown]
  - Hypersensitivity [Unknown]
  - Paraesthesia oral [Recovered/Resolved]

NARRATIVE: CASE EVENT DATE: 20190917
